FAERS Safety Report 10833610 (Version 5)
Quarter: 2015Q3

REPORT INFORMATION
  Report Type: Report from Study
  Country: JP (occurrence: JP)
  Receive Date: 20150219
  Receipt Date: 20150716
  Transmission Date: 20151125
  Serious: Yes (Hospitalization)
  Sender: FDA-Public Use
  Company Number: JP-EISAI MEDICAL RESEARCH-EC-2015-004140

PATIENT
  Age: 62 Year
  Sex: Female
  Weight: 55 kg

DRUGS (5)
  1. HALAVEN [Suspect]
     Active Substance: ERIBULIN MESYLATE
     Indication: BREAST CANCER RECURRENT
     Route: 041
     Dates: start: 20150106, end: 20150428
  2. EDOXABAN TOSILATE HYDRATE [Concomitant]
  3. GASTER [Concomitant]
     Active Substance: FAMOTIDINE
  4. HEPARIN [Concomitant]
     Active Substance: HEPARIN SODIUM
  5. ETIZOLAM [Concomitant]
     Active Substance: ETIZOLAM

REACTIONS (4)
  - Peripheral sensory neuropathy [None]
  - Tachycardia [Recovering/Resolving]
  - Pulmonary embolism [Recovering/Resolving]
  - Metastases to liver [None]

NARRATIVE: CASE EVENT DATE: 20150106
